FAERS Safety Report 14341368 (Version 1)
Quarter: 2018Q1

REPORT INFORMATION
  Report Type: Spontaneous
  Country: CN (occurrence: CN)
  Receive Date: 20180102
  Receipt Date: 20180102
  Transmission Date: 20180509
  Serious: Yes (Death, Life-Threatening, Hospitalization, Other)
  Sender: FDA-Public Use
  Company Number: CN-AXELLIA-001230

PATIENT
  Age: 72 Year
  Sex: Female

DRUGS (6)
  1. TIGECYCLINE. [Suspect]
     Active Substance: TIGECYCLINE
     Indication: ACINETOBACTER INFECTION
  2. VANCOMYCIN [Suspect]
     Active Substance: VANCOMYCIN
     Indication: SEPSIS
  3. INSULIN [Concomitant]
     Active Substance: INSULIN NOS
     Indication: HYPERGLYCAEMIA
  4. CEFTRIAXONE. [Suspect]
     Active Substance: CEFTRIAXONE
     Indication: HYPERPYREXIA
  5. IMIPENEM [Suspect]
     Active Substance: IMIPENEM
     Indication: SEPSIS
  6. TIGECYCLINE. [Suspect]
     Active Substance: TIGECYCLINE
     Indication: ACINETOBACTER INFECTION

REACTIONS (4)
  - Pathogen resistance [Unknown]
  - Pancreatitis necrotising [Recovering/Resolving]
  - Cerebral aspergillosis [Fatal]
  - Acinetobacter infection [Recovering/Resolving]
